FAERS Safety Report 6221094-7 (Version None)
Quarter: 2009Q2

REPORT INFORMATION
  Report Type: 
  Country: None (occurrence: None)
  Receive Date: 20090610
  Receipt Date: 20090602
  Transmission Date: 20091009
  Serious: Yes (Life-Threatening)
  Sender: FDA-Public Use
  Company Number: B0571655A

PATIENT
  Sex: Male

DRUGS (4)
  1. SERETIDE [Suspect]
     Indication: ASTHMA
     Dosage: 500MCG TWICE PER DAY
     Route: 055
     Dates: start: 20081027
  2. PLETAL [Concomitant]
     Indication: CEREBRAL INFARCTION
     Dosage: 200MG PER DAY
     Route: 048
     Dates: start: 20060602
  3. CELESTAMINE [Concomitant]
     Route: 048
     Dates: start: 20041119
  4. THEO-DUR [Concomitant]
     Indication: ASTHMA
     Dosage: 200MG PER DAY
     Route: 048
     Dates: start: 20060602

REACTIONS (5)
  - ASTHMA [None]
  - CONDITION AGGRAVATED [None]
  - COUGH [None]
  - DEVICE FAILURE [None]
  - PRODUCT QUALITY ISSUE [None]
